FAERS Safety Report 12424368 (Version 1)
Quarter: 2016Q2

REPORT INFORMATION
  Report Type: Spontaneous
  Country: US (occurrence: None)
  Receive Date: 20160531
  Receipt Date: 20160531
  Transmission Date: 20160815
  Serious: No
  Sender: FDA-Public Use
  Company Number: None

PATIENT
  Age: 19 Year
  Sex: Male

DRUGS (1)
  1. PULMOZYME [Suspect]
     Active Substance: DORNASE ALFA
     Indication: CYSTIC FIBROSIS
     Dosage: 2.5 MG QD INHALE
     Route: 055
     Dates: start: 20151006

REACTIONS (3)
  - Feeding tube complication [None]
  - Infection [None]
  - Skin disorder [None]

NARRATIVE: CASE EVENT DATE: 20160519
